FAERS Safety Report 8860198 (Version 1)
Quarter: 2012Q4

REPORT INFORMATION
  Report Type: 
  Country: DE (occurrence: DE)
  Receive Date: 20121025
  Receipt Date: 20121025
  Transmission Date: 20130627
  Serious: Yes (Other)
  Sender: FDA-Public Use
  Company Number: DE-ASTELLAS-2012EU008688

PATIENT
  Age: 50 Year
  Sex: Female
  Weight: 55.5 kg

DRUGS (2)
  1. PROGRAF [Suspect]
     Indication: RENAL TRANSPLANT
     Dosage: 4.5 DF, bid
     Route: 048
     Dates: start: 20100922
  2. ZACPAC [Interacting]
     Indication: HELICOBACTER INFECTION
     Dosage: UNK DF, UNK
     Route: 048
     Dates: start: 20101226

REACTIONS (2)
  - Drug interaction [Unknown]
  - Drug level increased [Recovered/Resolved]
